FAERS Safety Report 21465402 (Version 3)
Quarter: 2022Q4

REPORT INFORMATION
  Report Type: Spontaneous
  Country: US (occurrence: US)
  Receive Date: 20221017
  Receipt Date: 20221228
  Transmission Date: 20230112
  Serious: Yes (Other)
  Sender: FDA-Public Use
  Company Number: US-PFIZER INC-PV202200082644

PATIENT
  Age: 52 Year
  Sex: Male

DRUGS (1)
  1. XELJANZ [Suspect]
     Active Substance: TOFACITINIB CITRATE
     Indication: Colitis ulcerative
     Dosage: 10 MG, 2X/DAY
     Route: 048
     Dates: start: 20220926

REACTIONS (10)
  - Haematochezia [Unknown]
  - COVID-19 [Recovering/Resolving]
  - Headache [Unknown]
  - Oral herpes [Unknown]
  - Fatigue [Unknown]
  - Faeces hard [Unknown]
  - Gastrointestinal tract irritation [Unknown]
  - Frequent bowel movements [Unknown]
  - Product dose omission in error [Unknown]
  - Overdose [Unknown]

NARRATIVE: CASE EVENT DATE: 20220101
